FAERS Safety Report 17483821 (Version 1)
Quarter: 2020Q1

REPORT INFORMATION
  Report Type: Spontaneous
  Country: US (occurrence: US)
  Receive Date: 20200219
  Receipt Date: 20200219
  Transmission Date: 20200409
  Serious: No
  Sender: FDA-Public Use
  Company Number: None

PATIENT
  Age: 58 Year
  Sex: Female

DRUGS (1)
  1. BOTOX [Suspect]
     Active Substance: ONABOTULINUMTOXINA
     Dosage: ?          OTHER STRENGTH:100 U;OTHER DOSE:200 UNITS;?
     Route: 030
     Dates: start: 20191107

REACTIONS (3)
  - Product dispensing error [None]
  - Transcription medication error [None]
  - Product use issue [None]

NARRATIVE: CASE EVENT DATE: 20200212
